FAERS Safety Report 17980564 (Version 2)
Quarter: 2020Q4

REPORT INFORMATION
  Report Type: Spontaneous
  Country: US (occurrence: US)
  Receive Date: 20200704
  Receipt Date: 20201130
  Transmission Date: 20210113
  Serious: No
  Sender: FDA-Public Use
  Company Number: US-SHIRE-US202021571

PATIENT
  Age: 76 Year
  Sex: Female

DRUGS (5)
  1. GATTEX [Suspect]
     Active Substance: TEDUGLUTIDE\WATER
     Indication: PRODUCT USED FOR UNKNOWN INDICATION
     Dosage: 0.2800 (UNIT UNKNOWN)
     Route: 058
     Dates: start: 20151103
  2. GATTEX [Suspect]
     Active Substance: TEDUGLUTIDE\WATER
     Indication: PRODUCT USED FOR UNKNOWN INDICATION
     Dosage: 0.2800 (UNIT UNKNOWN)
     Route: 058
     Dates: start: 20151103
  3. GATTEX [Suspect]
     Active Substance: TEDUGLUTIDE\WATER
     Indication: PRODUCT USED FOR UNKNOWN INDICATION
     Dosage: 0.2800 (UNIT UNKNOWN)
     Route: 058
     Dates: start: 20151103
  4. GATTEX [Suspect]
     Active Substance: TEDUGLUTIDE\WATER
     Indication: PRODUCT USED FOR UNKNOWN INDICATION
     Dosage: 0.2800 (UNIT UNKNOWN)
     Route: 058
     Dates: start: 20151103
  5. CANNABIDIOL [Concomitant]
     Active Substance: CANNABIDIOL
     Dosage: UNK
     Route: 065

REACTIONS (2)
  - Wrist fracture [Not Recovered/Not Resolved]
  - Constipation [Recovering/Resolving]

NARRATIVE: CASE EVENT DATE: 20200602
